FAERS Safety Report 20530689 (Version 1)
Quarter: 2022Q1

REPORT INFORMATION
  Report Type: Spontaneous
  Country: US (occurrence: US)
  Receive Date: 20220301
  Receipt Date: 20220301
  Transmission Date: 20220423
  Serious: Yes (Death, Other)
  Sender: FDA-Public Use
  Company Number: US-NOVARTISPH-NVSC2022US047566

PATIENT
  Age: 65 Year
  Sex: Female

DRUGS (6)
  1. RANITIDINE [Suspect]
     Active Substance: RANITIDINE
     Dosage: 75 MG,150 MG,,DAILY,
     Route: 048
     Dates: start: 200501, end: 202001
  2. RANITIDINE [Suspect]
     Active Substance: RANITIDINE
     Indication: Abdominal discomfort
  3. RANITIDINE [Suspect]
     Active Substance: RANITIDINE
     Indication: Dyspepsia
  4. RANITIDINE [Suspect]
     Active Substance: RANITIDINE
     Dosage: 75 MG,150 MG,,DAILY,
     Route: 048
     Dates: start: 200501, end: 202001
  5. RANITIDINE [Suspect]
     Active Substance: RANITIDINE
     Indication: Abdominal discomfort
  6. RANITIDINE [Suspect]
     Active Substance: RANITIDINE
     Indication: Dyspepsia

REACTIONS (3)
  - Breast cancer [Unknown]
  - Death [Fatal]
  - Incorrect dose administered [Unknown]

NARRATIVE: CASE EVENT DATE: 20200701
